FAERS Safety Report 12966733 (Version 1)
Quarter: 2016Q4

REPORT INFORMATION
  Report Type: Spontaneous
  Country: US (occurrence: US)
  Receive Date: 20160908
  Receipt Date: 20160908
  Transmission Date: 20170207
  Serious: Yes (Other)
  Sender: FDA-Public Use
  Company Number: None

PATIENT
  Age: 59 Year
  Sex: Female

DRUGS (4)
  1. UNSPECIFIED CHLOROPHYLLIC DOUCHE [Concomitant]
  2. AZO [Concomitant]
     Active Substance: PHENAZOPYRIDINE HYDROCHLORIDE
  3. NITROFURAN [Concomitant]
     Active Substance: NITROFURANTOIN
  4. VAG PACK SUPPOSITORIES [Suspect]
     Active Substance: HOMEOPATHICS
     Indication: DRUG THERAPY
     Dosage: ?          OTHER FREQUENCY:WEEKLY;?
     Route: 067
     Dates: start: 20150203, end: 20160204

REACTIONS (6)
  - Renal pain [None]
  - Dysuria [None]
  - Application site pain [None]
  - Haematuria [None]
  - Back pain [None]
  - Intentional product misuse [None]

NARRATIVE: CASE EVENT DATE: 20150203
